FAERS Safety Report 4296412-X (Version None)
Quarter: 2004Q1

REPORT INFORMATION
  Report Type: 
  Country: None (occurrence: None)
  Receive Date: 20040212
  Receipt Date: 20040204
  Transmission Date: 20041129
  Serious: Yes (Life-Threatening, Hospitalization)
  Sender: FDA-Public Use
  Company Number: 2004-02-0262

PATIENT
  Age: 36 Year
  Sex: Female

DRUGS (2)
  1. PEG-INTRON [Suspect]
     Indication: HEPATITIS VIRAL
     Dosage: 100 MCG QWK SUBCUTANEOUS
     Route: 058
     Dates: start: 20030619, end: 20031202
  2. REBETOL [Suspect]
     Indication: HEPATITIS VIRAL
     Dosage: 400 MG QD ORAL
     Route: 048
     Dates: start: 20030619, end: 20031202

REACTIONS (2)
  - ANAEMIA [None]
  - UPPER RESPIRATORY TRACT INFECTION [None]
